FAERS Safety Report 25954207 (Version 1)
Quarter: 2025Q4

REPORT INFORMATION
  Report Type: Spontaneous
  Country: US (occurrence: US)
  Receive Date: 20251023
  Receipt Date: 20251023
  Transmission Date: 20260117
  Serious: Yes (Other)
  Sender: MERCK SHARP & DOHME LLC
  Company Number: US-009507513-2340553

PATIENT
  Age: 49 Year
  Sex: Female

DRUGS (2)
  1. BELZUTIFAN [Suspect]
     Active Substance: BELZUTIFAN
     Indication: Paraganglion neoplasm malignant
  2. BELZUTIFAN [Suspect]
     Active Substance: BELZUTIFAN
     Indication: Paraganglion neoplasm malignant

REACTIONS (4)
  - Hypoxia [Recovered/Resolved]
  - Off label use [Unknown]
  - Transaminases increased [Recovered/Resolved]
  - Anaemia [Recovered/Resolved]
